FAERS Safety Report 10172978 (Version 1)
Quarter: 2014Q2

REPORT INFORMATION
  Report Type: Spontaneous
  Country: US (occurrence: None)
  Receive Date: 20140415
  Receipt Date: 20140415
  Transmission Date: 20141212
  Serious: Yes (Other)
  Sender: FDA-Public Use
  Company Number: ALL1-2013-08254

PATIENT
  Age: 24 Year
  Sex: Male
  Weight: 90.7 kg

DRUGS (2)
  1. VYVANSE [Suspect]
     Indication: ATTENTION DEFICIT/HYPERACTIVITY DISORDER
     Route: 048
     Dates: start: 20131020, end: 201311
  2. SYNTHROID (LEVOTHYROXINE SODIUM) [Concomitant]

REACTIONS (9)
  - Depression [None]
  - Tachyphrenia [None]
  - Disturbance in attention [None]
  - Negativism [None]
  - Feeling of despair [None]
  - Nervousness [None]
  - Fatigue [None]
  - Drug ineffective [None]
  - Drug prescribing error [None]
